FAERS Safety Report 16568102 (Version 5)
Quarter: 2020Q1

REPORT INFORMATION
  Report Type: Spontaneous
  Country: US (occurrence: US)
  Receive Date: 20190712
  Receipt Date: 20200115
  Transmission Date: 20200409
  Serious: Yes (Death, Hospitalization)
  Sender: FDA-Public Use
  Company Number: US-PFIZER INC-2019293241

PATIENT
  Age: 76 Year
  Sex: Female
  Weight: 66.21 kg

DRUGS (2)
  1. LETROZOLE. [Concomitant]
     Active Substance: LETROZOLE
     Indication: BREAST CANCER METASTATIC
     Dosage: UNK
     Dates: start: 20190605
  2. IBRANCE [Suspect]
     Active Substance: PALBOCICLIB
     Indication: BREAST CANCER METASTATIC
     Dosage: 125 MG, CYCLIC [ONCE DAILY FOR 21 DAYS, THEN SHE STOPS FOR 7 DAYS]
     Route: 048
     Dates: start: 20190605

REACTIONS (4)
  - Stomatitis [Recovered/Resolved]
  - Visual impairment [Unknown]
  - Death [Fatal]
  - Full blood count decreased [Recovered/Resolved]

NARRATIVE: CASE EVENT DATE: 20190605
